FAERS Safety Report 10188733 (Version 3)
Quarter: 2014Q2

REPORT INFORMATION
  Report Type: Spontaneous
  Country: US (occurrence: US)
  Receive Date: 20140522
  Receipt Date: 20140630
  Transmission Date: 20141212
  Serious: Yes (Death, Other)
  Sender: FDA-Public Use
  Company Number: US-ASTRAZENECA-2014SE34390

PATIENT
  Age: 59 Year
  Sex: Male

DRUGS (5)
  1. SYMBICORT [Suspect]
     Dosage: 160/4.5 MCG, 2 PUFFS DAILY
     Route: 055
  2. SYMBICORT [Suspect]
     Dosage: 160/4.5 MCG, 2 PUFFS BID
     Route: 055
     Dates: start: 201312
  3. SYMBICORT [Suspect]
     Dosage: OVERUSE
     Route: 055
  4. SPIRIVA [Concomitant]
  5. OXYCODONE [Concomitant]

REACTIONS (6)
  - Neoplasm malignant [Fatal]
  - Dyspnoea [Unknown]
  - Off label use [Unknown]
  - Intentional product misuse [Unknown]
  - Device misuse [Unknown]
  - Circumstance or information capable of leading to medication error [Unknown]
